FAERS Safety Report 9708332 (Version 1)
Quarter: 2013Q4

REPORT INFORMATION
  Report Type: Spontaneous
  Country: US (occurrence: None)
  Receive Date: 20131121
  Receipt Date: 20131121
  Transmission Date: 20140711
  Serious: Yes (Hospitalization)
  Sender: FDA-Public Use
  Company Number: FK201305042

PATIENT
  Age: 59 Year
  Sex: Male

DRUGS (3)
  1. FLUOROURACIL [Suspect]
     Indication: SQUAMOUS CELL CARCINOMA OF THE TONGUE
     Dates: start: 201109
  2. CISPLATIN (CISPLATIN) [Concomitant]
  3. DOCETAXEL (DOCETAXEL) [Concomitant]

REACTIONS (7)
  - Ventricular fibrillation [None]
  - Cardiac arrest [None]
  - Arteriospasm coronary [None]
  - Sinus bradycardia [None]
  - Atrial fibrillation [None]
  - Left ventricular hypertrophy [None]
  - Myocarditis [None]
